FAERS Safety Report 14559855 (Version 1)
Quarter: 2018Q1

REPORT INFORMATION
  Report Type: Spontaneous
  Country: US (occurrence: US)
  Receive Date: 20180220
  Receipt Date: 20180220
  Transmission Date: 20180509
  Serious: Yes (Other)
  Sender: FDA-Public Use
  Company Number: None

PATIENT
  Age: 63 Year
  Sex: Female
  Weight: 60.75 kg

DRUGS (12)
  1. MAGNESIUM [Concomitant]
     Active Substance: MAGNESIUM
  2. HUMALOG [Concomitant]
     Active Substance: INSULIN LISPRO
  3. MULTI-VIT [Concomitant]
     Active Substance: VITAMINS
  4. FISH OIL [Concomitant]
     Active Substance: FISH OIL
  5. VITAMIN B [Concomitant]
     Active Substance: VITAMIN B
  6. SYNTHROID [Concomitant]
     Active Substance: LEVOTHYROXINE SODIUM
  7. LANTUS [Concomitant]
     Active Substance: INSULIN GLARGINE
  8. VITAMIN A [Concomitant]
     Active Substance: VITAMIN A
  9. LEVEMIR [Suspect]
     Active Substance: INSULIN DETEMIR
     Indication: TYPE 1 DIABETES MELLITUS
     Dosage: ?          OTHER STRENGTH:UNITS;QUANTITY:9 INJECTION(S);?
     Route: 058
     Dates: start: 20180201, end: 20180201
  10. FENTANYL. [Concomitant]
     Active Substance: FENTANYL
  11. CYCLOBENZAPRINE. [Concomitant]
     Active Substance: CYCLOBENZAPRINE
  12. VITAMIN C [Concomitant]
     Active Substance: ASCORBIC ACID

REACTIONS (4)
  - Palpitations [None]
  - Gluten sensitivity [None]
  - Product formulation issue [None]
  - Blood pressure increased [None]

NARRATIVE: CASE EVENT DATE: 20180201
